FAERS Safety Report 11462667 (Version 1)
Quarter: 2015Q3

REPORT INFORMATION
  Report Type: Spontaneous
  Country: US (occurrence: US)
  Receive Date: 20150831
  Receipt Date: 20150831
  Transmission Date: 20151125
  Serious: No
  Sender: FDA-Public Use
  Company Number: US-ELI_LILLY_AND_COMPANY-US201101000319

PATIENT
  Sex: Male

DRUGS (1)
  1. CYMBALTA [Suspect]
     Active Substance: DULOXETINE HYDROCHLORIDE
     Indication: ANXIETY
     Dosage: 150 MG, DAILY (1/D)

REACTIONS (4)
  - Foreign body [Recovered/Resolved]
  - Rhinorrhoea [Recovering/Resolving]
  - Epistaxis [Unknown]
  - Prescribed overdose [Unknown]
